FAERS Safety Report 21802558 (Version 3)
Quarter: 2023Q1

REPORT INFORMATION
  Report Type: Report from Study
  Country: JP (occurrence: JP)
  Receive Date: 20221231
  Receipt Date: 20230316
  Transmission Date: 20230418
  Serious: Yes (Hospitalization, Other)
  Sender: FDA-Public Use
  Company Number: JP-CELLTRION INC.-2022JP021875

PATIENT

DRUGS (17)
  1. TRASTUZUMAB [Suspect]
     Active Substance: TRASTUZUMAB
     Indication: HER2 positive gastric cancer
     Dosage: 323 MILLIGRAM, QD
     Route: 041
     Dates: start: 20220606, end: 20220606
  2. TRASTUZUMAB [Suspect]
     Active Substance: TRASTUZUMAB
     Dosage: 323 MILLIGRAM, QD
     Route: 041
     Dates: start: 20220711, end: 20220711
  3. TRASTUZUMAB [Suspect]
     Active Substance: TRASTUZUMAB
     Dosage: 323 MILLIGRAM, QD
     Route: 041
     Dates: start: 20220808, end: 20220808
  4. OXALIPLATIN [Suspect]
     Active Substance: OXALIPLATIN
     Indication: HER2 positive gastric cancer
     Dosage: 105 MILLIGRAM, QD
     Route: 041
     Dates: start: 20220606, end: 20220606
  5. OXALIPLATIN [Suspect]
     Active Substance: OXALIPLATIN
     Dosage: 79 MILLIGRAM, QD
     Route: 041
     Dates: start: 20220711, end: 20220711
  6. OXALIPLATIN [Suspect]
     Active Substance: OXALIPLATIN
     Dosage: 65 MILLIGRAM, QD
     Route: 041
     Dates: start: 20220808, end: 20220808
  7. AMINO ACIDS\CARBOHYDRATES\MINERALS\SOYBEAN OIL\VITAMINS [Concomitant]
     Active Substance: AMINO ACIDS\CARBOHYDRATES\MINERALS\SOYBEAN OIL\VITAMINS
     Indication: Decreased appetite
     Dosage: UNK
  8. MOSAPRIDE CITRATE [Concomitant]
     Active Substance: MOSAPRIDE CITRATE
     Indication: Procedural pain
     Dosage: UNK
  9. METHYLCOBALAMIN [Concomitant]
     Active Substance: METHYLCOBALAMIN
     Dosage: UNK
  10. APREPITANT [Concomitant]
     Active Substance: APREPITANT
     Dosage: UNK
     Dates: start: 20220606
  11. APREPITANT [Concomitant]
     Active Substance: APREPITANT
     Dosage: UNK
     Dates: start: 20220607
  12. DECADRON [Concomitant]
     Active Substance: DEXAMETHASONE
     Indication: Prophylaxis of nausea and vomiting
     Dosage: UNK
     Dates: start: 20220607
  13. METOCLOPRAMIDE [Concomitant]
     Active Substance: METOCLOPRAMIDE
     Dosage: UNK
     Dates: end: 20220703
  14. ALFACALCIDOL [Concomitant]
     Active Substance: ALFACALCIDOL
     Indication: Osteoporosis
     Dosage: UNK
  15. OLANZAPINE [Concomitant]
     Active Substance: OLANZAPINE
     Indication: Prophylaxis of nausea and vomiting
     Dosage: UNK
     Dates: start: 20220808
  16. Fesin [Concomitant]
     Dosage: UNK
     Dates: start: 20220606, end: 20220808
  17. SODIUM CHLORIDE [Concomitant]
     Active Substance: SODIUM CHLORIDE
     Indication: Microcytic anaemia
     Dosage: UNK
     Dates: start: 20220606, end: 20220808

REACTIONS (16)
  - Enterocolitis [Recovering/Resolving]
  - Hypokalaemia [Recovering/Resolving]
  - Malaise [Recovering/Resolving]
  - Diarrhoea [Recovering/Resolving]
  - Blood lactate dehydrogenase increased [Recovering/Resolving]
  - Alanine aminotransferase increased [Recovering/Resolving]
  - Aspartate aminotransferase increased [Recovering/Resolving]
  - C-reactive protein increased [Not Recovered/Not Resolved]
  - Gamma-glutamyltransferase increased [Not Recovered/Not Resolved]
  - Hyponatraemia [Recovering/Resolving]
  - Abdominal pain [Recovering/Resolving]
  - Neutrophil count decreased [Not Recovered/Not Resolved]
  - Pyrexia [Recovering/Resolving]
  - White blood cell count decreased [Not Recovered/Not Resolved]
  - Diarrhoea [Recovering/Resolving]
  - Off label use [Unknown]

NARRATIVE: CASE EVENT DATE: 20220606
